FAERS Safety Report 7718000-2 (Version None)
Quarter: 2011Q3

REPORT INFORMATION
  Report Type: 
  Country: None (occurrence: None)
  Receive Date: 20110830
  Receipt Date: 20110817
  Transmission Date: 20111222
  Serious: Yes (Other)
  Sender: FDA-Public Use
  Company Number: US-UCBSA-039646

PATIENT

DRUGS (1)
  1. CIMZIA [Suspect]
     Indication: CROHN'S DISEASE
     Route: 058
     Dates: start: 20110622, end: 20110801

REACTIONS (1)
  - NEOPLASM MALIGNANT [None]
